FAERS Safety Report 9317035 (Version 1)
Quarter: 2013Q2

REPORT INFORMATION
  Report Type: Spontaneous
  Country: HK (occurrence: None)
  Receive Date: 20130523
  Receipt Date: 20130523
  Transmission Date: 20140414
  Serious: Yes (Other)
  Sender: FDA-Public Use
  Company Number: NSR_01136_2013

PATIENT
  Age: 1 Month
  Sex: Female

DRUGS (2)
  1. PROPRANOLOL (PROPRANOLOL) [Suspect]
     Indication: HAEMANGIOMA
     Dosage: 1.5 MG/KG,DAILY, IN 4 DIVIDED DOSES
  2. PROPRANOLOL (PROPRANOLOL) [Suspect]
     Indication: OFF LABEL USE
     Dosage: 1.5 MG/KG,DAILY, IN 4 DIVIDED DOSES

REACTIONS (2)
  - Hypotension [None]
  - Haemangioma [None]
